FAERS Safety Report 13415365 (Version 4)
Quarter: 2017Q2

REPORT INFORMATION
  Report Type: Report from Study
  Country: US (occurrence: US)
  Receive Date: 20170406
  Receipt Date: 20170421
  Transmission Date: 20170830
  Serious: Yes (Hospitalization, Other)
  Sender: FDA-Public Use
  Company Number: US-AMGEN-USASL2017049482

PATIENT
  Age: 65 Year
  Sex: Female

DRUGS (1)
  1. ENBREL [Suspect]
     Active Substance: ETANERCEPT
     Indication: RHEUMATOID ARTHRITIS
     Dosage: 50 MG, QWK
     Route: 065
     Dates: start: 20160303

REACTIONS (8)
  - Gallbladder disorder [Recovering/Resolving]
  - Drug dose omission [Unknown]
  - Rheumatoid arthritis [Unknown]
  - Feeling hot [Unknown]
  - Pruritus [Unknown]
  - Cholelithiasis [Recovering/Resolving]
  - Rash macular [Unknown]
  - Burning sensation [Unknown]

NARRATIVE: CASE EVENT DATE: 2016
